FAERS Safety Report 13870112 (Version 1)
Quarter: 2017Q3

REPORT INFORMATION
  Report Type: Spontaneous
  Country: JP (occurrence: JP)
  Receive Date: 20170815
  Receipt Date: 20170815
  Transmission Date: 20171127
  Serious: Yes (Other)
  Sender: FDA-Public Use
  Company Number: JP-ELI_LILLY_AND_COMPANY-JP201708005068

PATIENT
  Age: 86 Year
  Sex: Female
  Weight: 34 kg

DRUGS (3)
  1. ERBITUX [Suspect]
     Active Substance: CETUXIMAB
     Dosage: 200 MG/M2, UNK
     Route: 041
     Dates: start: 20170608
  2. PACLITAXEL. [Concomitant]
     Active Substance: PACLITAXEL
     Indication: GINGIVAL CANCER
     Dosage: UNK
     Route: 041
     Dates: start: 20170419, end: 20170508
  3. ERBITUX [Suspect]
     Active Substance: CETUXIMAB
     Indication: GINGIVAL CANCER
     Dosage: 250 MG/M2, WEEKLY (1/W)
     Route: 041
     Dates: start: 20170419, end: 20170525

REACTIONS (8)
  - Gastric ulcer [Recovering/Resolving]
  - Oesophagitis [Recovering/Resolving]
  - Off label use [Unknown]
  - Melaena [Unknown]
  - Dry skin [Recovering/Resolving]
  - Paronychia [Recovering/Resolving]
  - Abdominal pain upper [Recovered/Resolved]
  - Decreased appetite [Unknown]

NARRATIVE: CASE EVENT DATE: 20170518
